FAERS Safety Report 5797004-3 (Version None)
Quarter: 2008Q3

REPORT INFORMATION
  Report Type: 
  Country: None (occurrence: None)
  Receive Date: 20080701
  Receipt Date: 20080626
  Transmission Date: 20090109
  Serious: Yes (Other)
  Sender: FDA-Public Use
  Company Number: FR-BAYER-200821075GPV

PATIENT
  Age: 51 Year
  Sex: Male

DRUGS (5)
  1. IZILOX [Suspect]
     Indication: DRUG USE FOR UNKNOWN INDICATION
     Dosage: TOTAL DAILY DOSE: 400 MG  UNIT DOSE: 400 MG
     Route: 048
     Dates: start: 20080413, end: 20080414
  2. DERINOX (NAPHAZOLINE) [Concomitant]
     Indication: DRUG USE FOR UNKNOWN INDICATION
     Route: 065
     Dates: start: 20080413
  3. PREDNISOLONE [Concomitant]
     Indication: DRUG USE FOR UNKNOWN INDICATION
     Route: 065
     Dates: start: 20080413
  4. DIOALGO [Concomitant]
     Indication: DRUG USE FOR UNKNOWN INDICATION
     Route: 065
     Dates: start: 20080413
  5. CIBLOR [Concomitant]
     Indication: DRUG USE FOR UNKNOWN INDICATION
     Route: 065
     Dates: start: 20080414

REACTIONS (7)
  - DEPERSONALISATION [None]
  - HALLUCINATION [None]
  - HEARING IMPAIRED [None]
  - MALAISE [None]
  - PANIC REACTION [None]
  - VERTIGO [None]
  - VISUAL IMPAIRMENT [None]
